FAERS Safety Report 11401548 (Version 4)
Quarter: 2016Q1

REPORT INFORMATION
  Report Type: Report from Study
  Country: US (occurrence: US)
  Receive Date: 20150821
  Receipt Date: 20160119
  Transmission Date: 20160525
  Serious: Yes (Other)
  Sender: FDA-Public Use
  Company Number: US-AMGEN-USASL2015082721

PATIENT
  Age: 71 Year
  Sex: Male

DRUGS (1)
  1. ENBREL [Suspect]
     Active Substance: ETANERCEPT
     Indication: PSORIATIC ARTHROPATHY
     Dosage: 50 MG, QWK
     Route: 065
     Dates: start: 20150429

REACTIONS (12)
  - Eczema [Recovered/Resolved]
  - Pain in extremity [Unknown]
  - Hyperkeratosis [Unknown]
  - Dyspnoea [Unknown]
  - Skin exfoliation [Recovered/Resolved]
  - Arthralgia [Unknown]
  - Renal impairment [Not Recovered/Not Resolved]
  - Gait disturbance [Unknown]
  - Skin haemorrhage [Recovered/Resolved]
  - Dysphagia [Unknown]
  - Peripheral swelling [Unknown]
  - Pain [Unknown]

NARRATIVE: CASE EVENT DATE: 2015
